FAERS Safety Report 24647386 (Version 1)
Quarter: 2024Q4

REPORT INFORMATION
  Report Type: Spontaneous
  Country: US (occurrence: US)
  Receive Date: 20241121
  Receipt Date: 20241121
  Transmission Date: 20250115
  Serious: No
  Sender: ALVOGEN
  Company Number: US-ALVOGEN-2024095357

PATIENT
  Sex: Female

DRUGS (1)
  1. TERIPARATIDE [Suspect]
     Active Substance: TERIPARATIDE
     Indication: Osteoporosis
     Dosage: DAILY?EXPIRATION DATE: JUN-2025
     Route: 058
     Dates: start: 202406

REACTIONS (10)
  - Pollakiuria [Unknown]
  - Dehydration [Unknown]
  - Abdominal hernia [Unknown]
  - Feeling abnormal [Unknown]
  - Irritability [Unknown]
  - Malaise [Unknown]
  - Pain [Not Recovered/Not Resolved]
  - Dizziness [Not Recovered/Not Resolved]
  - Injection site bruising [Unknown]
  - Wrong technique in device usage process [Unknown]

NARRATIVE: CASE EVENT DATE: 20240101
